FAERS Safety Report 10788734 (Version 8)
Quarter: 2016Q4

REPORT INFORMATION
  Report Type: Report from Study
  Country: US (occurrence: US)
  Receive Date: 20150212
  Receipt Date: 20161212
  Transmission Date: 20170206
  Serious: Yes (Hospitalization, Other)
  Sender: FDA-Public Use
  Company Number: US-SA-2014SA081297

PATIENT
  Age: 51 Year
  Sex: Male

DRUGS (22)
  1. OXYBUTYNIN [Concomitant]
     Active Substance: OXYBUTYNIN
     Dosage: STRENGTH=5 MG
  2. TRAZODONE HYDROCHLORIDE. [Concomitant]
     Active Substance: TRAZODONE HYDROCHLORIDE
     Dosage: STRENGTH=50 MG
  3. AUBAGIO [Suspect]
     Active Substance: TERIFLUNOMIDE
     Indication: MULTIPLE SCLEROSIS
     Route: 048
     Dates: start: 201405
  4. AMPYRA [Concomitant]
     Active Substance: DALFAMPRIDINE
     Route: 065
     Dates: start: 20140709, end: 201408
  5. NEURONTIN [Concomitant]
     Active Substance: GABAPENTIN
  6. CIPRO [Concomitant]
     Active Substance: CIPROFLOXACIN HYDROCHLORIDE
  7. COUMADIN [Concomitant]
     Active Substance: WARFARIN SODIUM
  8. AUBAGIO [Suspect]
     Active Substance: TERIFLUNOMIDE
     Indication: MULTIPLE SCLEROSIS
     Route: 048
     Dates: start: 201405
  9. AUBAGIO [Suspect]
     Active Substance: TERIFLUNOMIDE
     Indication: MULTIPLE SCLEROSIS
     Route: 048
     Dates: start: 20150519
  10. MIRAPEX [Concomitant]
     Active Substance: PRAMIPEXOLE DIHYDROCHLORIDE
     Dosage: STRENGTH=0.25 MG
  11. CELEXA [Concomitant]
     Active Substance: CITALOPRAM HYDROBROMIDE
  12. CITALOPRAM [Concomitant]
     Active Substance: CITALOPRAM HYDROBROMIDE
     Dosage: STRENGTH=10 MG
  13. AMBIEN [Concomitant]
     Active Substance: ZOLPIDEM TARTRATE
  14. CYCLOBENZAPRINE [Concomitant]
     Active Substance: CYCLOBENZAPRINE
  15. PRAMIPEXOLE DIHYDROCHLORIDE. [Concomitant]
     Active Substance: PRAMIPEXOLE DIHYDROCHLORIDE
  16. XANAX [Concomitant]
     Active Substance: ALPRAZOLAM
  17. WARFARIN [Concomitant]
     Active Substance: WARFARIN
     Dosage: STRENGTH=1 MG
  18. AUBAGIO [Suspect]
     Active Substance: TERIFLUNOMIDE
     Indication: MULTIPLE SCLEROSIS
     Route: 048
     Dates: start: 20150519
  19. TYLENOL W/ CODEINE [Concomitant]
  20. ALPRAZOLAM. [Concomitant]
     Active Substance: ALPRAZOLAM
  21. DITROPAN XL [Concomitant]
     Active Substance: OXYBUTYNIN CHLORIDE
  22. VITAMIN D [Concomitant]
     Active Substance: CHOLECALCIFEROL

REACTIONS (27)
  - Muscle spasms [Unknown]
  - Tooth infection [Not Recovered/Not Resolved]
  - Depressed mood [Unknown]
  - Urinary tract infection [Unknown]
  - Asthenia [Unknown]
  - Nephrolithiasis [Unknown]
  - Asthenia [Recovering/Resolving]
  - Multiple sclerosis relapse [Unknown]
  - Depression [Unknown]
  - Muscle rupture [Unknown]
  - Multiple sclerosis relapse [Recovering/Resolving]
  - International normalised ratio increased [Unknown]
  - Nuclear magnetic resonance imaging abnormal [Unknown]
  - Fatigue [Unknown]
  - Disturbance in attention [Unknown]
  - Pain in extremity [Recovered/Resolved]
  - Pain [Unknown]
  - Decreased interest [Unknown]
  - Contusion [Recovered/Resolved]
  - Hypoaesthesia [Unknown]
  - Muscular weakness [Unknown]
  - Diarrhoea [Unknown]
  - Fall [Unknown]
  - Feeling hot [Recovered/Resolved]
  - Fall [Unknown]
  - Abdominal discomfort [Unknown]
  - Constipation [Unknown]

NARRATIVE: CASE EVENT DATE: 2014
